FAERS Safety Report 14350686 (Version 8)
Quarter: 2020Q2

REPORT INFORMATION
  Report Type: Spontaneous
  Country: PT (occurrence: PT)
  Receive Date: 20180104
  Receipt Date: 20200518
  Transmission Date: 20200713
  Serious: Yes (Life-Threatening, Hospitalization, Other)
  Sender: FDA-Public Use
  Company Number: PT-BAUSCH-BL-2017-028111

PATIENT
  Age: 23 Year
  Sex: Female
  Weight: 102 kg

DRUGS (40)
  1. FLURBIPROFEN. [Suspect]
     Active Substance: FLURBIPROFEN
     Indication: ASTHMA
  2. HYDROCORTISONE. [Suspect]
     Active Substance: HYDROCORTISONE
     Indication: ASTHMA
     Route: 048
  3. DEXAMETHASONE. [Suspect]
     Active Substance: DEXAMETHASONE
     Indication: ASTHMA
     Route: 065
  4. DEXAMETHASONE. [Suspect]
     Active Substance: DEXAMETHASONE
     Indication: URTICARIA CHRONIC
  5. DEFLAZACORT [Suspect]
     Active Substance: DEFLAZACORT
     Indication: ASTHMA
     Route: 065
  6. EBASTINE [Suspect]
     Active Substance: EBASTINE
     Indication: ASTHMA
  7. HYDROXYZINE [Suspect]
     Active Substance: HYDROXYZINE HYDROCHLORIDE
     Indication: URTICARIA CHRONIC
  8. ACETAMINOPHEN. [Suspect]
     Active Substance: ACETAMINOPHEN
     Indication: PRODUCT USED FOR UNKNOWN INDICATION
     Route: 065
  9. HYDROCORTISONE. [Suspect]
     Active Substance: HYDROCORTISONE
     Route: 065
  10. PARACETAMOL [Suspect]
     Active Substance: ACETAMINOPHEN
     Indication: ASTHMA
     Route: 065
  11. ZYRTEC [Suspect]
     Active Substance: CETIRIZINE HYDROCHLORIDE
     Indication: URTICARIA CHRONIC
     Route: 065
  12. DESLORATADINE PLUS PHARMA [Suspect]
     Active Substance: DESLORATADINE
     Indication: ASTHMA
     Route: 048
  13. OMALIZUMAB. [Suspect]
     Active Substance: OMALIZUMAB
     Indication: ASTHMA
     Route: 065
  14. MONTELUKAST SODIUM. [Suspect]
     Active Substance: MONTELUKAST SODIUM
     Indication: DRUG PROVOCATION TEST
  15. FLURBIPROFEN. [Suspect]
     Active Substance: FLURBIPROFEN
     Indication: URTICARIA CHRONIC
     Route: 065
  16. LORATADINE. [Suspect]
     Active Substance: LORATADINE
     Indication: ASTHMA
     Route: 065
  17. CLEMASTINE [Suspect]
     Active Substance: CLEMASTINE
     Indication: ASTHMA
  18. PARACETAMOL [Suspect]
     Active Substance: ACETAMINOPHEN
     Indication: URTICARIA CHRONIC
  19. METHYLPREDNISOLONE. [Suspect]
     Active Substance: METHYLPREDNISOLONE
     Indication: URTICARIA CHRONIC
     Route: 062
  20. LORATADINE. [Suspect]
     Active Substance: LORATADINE
     Indication: URTICARIA CHRONIC
  21. CETIRIZINE HYDROCHLORIDE. [Suspect]
     Active Substance: CETIRIZINE HYDROCHLORIDE
     Indication: URTICARIA CHRONIC
     Route: 065
  22. CETIRIZINE HYDROCHLORIDE. [Suspect]
     Active Substance: CETIRIZINE HYDROCHLORIDE
     Indication: ASTHMA
  23. MONTELUKAST SODIUM. [Suspect]
     Active Substance: MONTELUKAST SODIUM
     Indication: ASTHMA
  24. DEFLAZACORT [Suspect]
     Active Substance: DEFLAZACORT
     Route: 048
  25. DESLORATADINE PLUS PHARMA [Suspect]
     Active Substance: DESLORATADINE
     Indication: URTICARIA CHRONIC
  26. CLEMASTINE [Suspect]
     Active Substance: CLEMASTINE
     Indication: URTICARIA CHRONIC
     Route: 065
  27. HYDROCORTISONE. [Suspect]
     Active Substance: HYDROCORTISONE
     Indication: URTICARIA CHRONIC
     Route: 062
  28. IBUPROFEN. [Suspect]
     Active Substance: IBUPROFEN
     Indication: URTICARIA CHRONIC
     Route: 065
  29. IBUPROFEN. [Suspect]
     Active Substance: IBUPROFEN
     Indication: ASTHMA
  30. METHYLPREDNISOLONE. [Suspect]
     Active Substance: METHYLPREDNISOLONE
     Indication: ASTHMA
  31. DESLORATADINE PLUS PHARMA [Suspect]
     Active Substance: DESLORATADINE
     Indication: DRUG PROVOCATION TEST
  32. OMALIZUMAB. [Suspect]
     Active Substance: OMALIZUMAB
     Indication: ANGIOEDEMA
     Route: 065
  33. CLARITINE [Suspect]
     Active Substance: LORATADINE
     Indication: URTICARIA CHRONIC
     Route: 065
  34. EBASTINE [Suspect]
     Active Substance: EBASTINE
     Indication: URTICARIA CHRONIC
     Route: 065
  35. MONTELUKAST SODIUM. [Suspect]
     Active Substance: MONTELUKAST SODIUM
     Indication: URTICARIA CHRONIC
     Dosage: DPT
     Route: 048
  36. DEFLAZACORT [Suspect]
     Active Substance: DEFLAZACORT
     Indication: URTICARIA CHRONIC
     Route: 062
  37. ZYRTEC [Suspect]
     Active Substance: CETIRIZINE HYDROCHLORIDE
     Indication: ASTHMA
  38. CLARITINE [Suspect]
     Active Substance: LORATADINE
     Indication: ASTHMA
  39. HYDROXYZINE [Suspect]
     Active Substance: HYDROXYZINE HYDROCHLORIDE
     Indication: ASTHMA
     Route: 065
  40. OMALIZUMAB. [Suspect]
     Active Substance: OMALIZUMAB
     Indication: URTICARIA CHRONIC

REACTIONS (8)
  - Drug reaction with eosinophilia and systemic symptoms [Recovered/Resolved]
  - Allergy test positive [Recovering/Resolving]
  - Exposure during pregnancy [Unknown]
  - Urticaria [Recovering/Resolving]
  - Syncope [Unknown]
  - Maternal exposure during pregnancy [Unknown]
  - Product use in unapproved indication [Unknown]
  - Angioedema [Recovering/Resolving]
